FAERS Safety Report 4421956-7 (Version None)
Quarter: 2004Q3

REPORT INFORMATION
  Report Type: 
  Country: None (occurrence: None)
  Receive Date: 20040709
  Receipt Date: 20030630
  Transmission Date: 20050211
  Serious: Yes (Other)
  Sender: FDA-Public Use
  Company Number: USA-2002-001484

PATIENT
  Age: 54 Year
  Sex: Male

DRUGS (4)
  1. ULTRAVIST 300 [Suspect]
     Indication: UROGRAPHY
     Dosage: 100 ML, 1 DOSE, INTRAVENOUS
     Route: 042
     Dates: start: 20020722, end: 20020722
  2. GLYBURIDE [Concomitant]
  3. METFORMIN HCL [Concomitant]
  4. NAPROXEN [Concomitant]

REACTIONS (4)
  - DYSPNOEA [None]
  - ERYTHEMA [None]
  - OROPHARYNGEAL SWELLING [None]
  - PHARYNGEAL ERYTHEMA [None]
